FAERS Safety Report 4557120-0 (Version None)
Quarter: 2005Q1

REPORT INFORMATION
  Report Type: 
  Country: None (occurrence: None)
  Receive Date: 20050103
  Receipt Date: 20041122
  Transmission Date: 20050727
  Serious: Yes (Other)
  Sender: FDA-Public Use
  Company Number: 2004UW19327

PATIENT
  Age: 52 Year
  Sex: Male
  Weight: 68.0396 kg

DRUGS (5)
  1. CRESTOR [Suspect]
     Indication: BLOOD CHOLESTEROL INCREASED
     Dosage: 10 MG PO
     Route: 048
     Dates: start: 20040101
  2. CRESTOR [Suspect]
     Indication: BLOOD CHOLESTEROL INCREASED
     Dosage: 20 MG PO
     Route: 048
     Dates: start: 20040101
  3. TOPROL-XL [Concomitant]
  4. ZYRTEC [Concomitant]
  5. ADVAIR [Concomitant]

REACTIONS (2)
  - HEADACHE [None]
  - TOOTHACHE [None]
